FAERS Safety Report 24899205 (Version 1)
Quarter: 2025Q1

REPORT INFORMATION
  Report Type: Spontaneous
  Country: SE (occurrence: SE)
  Receive Date: 20250129
  Receipt Date: 20250129
  Transmission Date: 20250409
  Serious: Yes (Hospitalization)
  Sender: RANBAXY
  Company Number: SE-SUN PHARMACEUTICAL INDUSTRIES LTD-2025RR-490328

PATIENT
  Age: 85 Year
  Sex: Female

DRUGS (10)
  1. ATORVASTATIN [Suspect]
     Active Substance: ATORVASTATIN
     Indication: Hyperlipidaemia
     Dosage: 20 MILLIGRAM, DAILY
     Route: 048
     Dates: start: 20241010, end: 20241017
  2. LEVOTHYROXINE SODIUM [Concomitant]
     Active Substance: LEVOTHYROXINE SODIUM
     Indication: Product used for unknown indication
     Route: 048
     Dates: start: 20241014
  3. CANDESARTAN [Concomitant]
     Active Substance: CANDESARTAN
     Indication: Product used for unknown indication
     Dosage: 16 MILLIGRAM, DAILY
     Route: 048
     Dates: start: 20220211
  4. Paraffin emulsion APL [Concomitant]
     Indication: Product used for unknown indication
     Route: 048
     Dates: start: 20211013
  5. ZOPICLONE [Concomitant]
     Active Substance: ZOPICLONE
     Indication: Product used for unknown indication
     Dosage: 5 MILLIGRAM, DAILY
     Route: 048
  6. DENTAN MINT [Concomitant]
     Indication: Product used for unknown indication
     Route: 065
     Dates: start: 20220118
  7. NITROLINGUAL [Concomitant]
     Active Substance: NITROGLYCERIN
     Indication: Product used for unknown indication
     Route: 060
     Dates: start: 20211106
  8. ASPIRIN [Concomitant]
     Active Substance: ASPIRIN
     Indication: Product used for unknown indication
     Route: 048
     Dates: start: 20210816
  9. FUROSEMIDE [Concomitant]
     Active Substance: FUROSEMIDE
     Indication: Product used for unknown indication
     Route: 048
     Dates: start: 20180228
  10. Sodium Fluoride Morningside [Concomitant]
     Indication: Product used for unknown indication
     Route: 065
     Dates: start: 20220928

REACTIONS (2)
  - Liver injury [Recovering/Resolving]
  - Jaundice [Recovering/Resolving]
